FAERS Safety Report 15656715 (Version 1)
Quarter: 2018Q4

REPORT INFORMATION
  Report Type: Spontaneous
  Country: JP (occurrence: JP)
  Receive Date: 20181126
  Receipt Date: 20181126
  Transmission Date: 20190205
  Serious: Yes (Hospitalization)
  Sender: FDA-Public Use
  Company Number: JP-ALLERGAN-1854629US

PATIENT
  Age: 85 Year
  Sex: Male

DRUGS (5)
  1. SILODOSIN - BP [Suspect]
     Active Substance: SILODOSIN
     Indication: BENIGN PROSTATIC HYPERPLASIA
     Dosage: 8 MG, A DAY
     Route: 048
     Dates: start: 20181001
  2. SILODOSIN - BP [Suspect]
     Active Substance: SILODOSIN
     Indication: DYSURIA
  3. EBRANTIL [Suspect]
     Active Substance: URAPIDIL
     Indication: PRODUCT USED FOR UNKNOWN INDICATION
     Route: 048
  4. ARICEPT [Concomitant]
     Active Substance: DONEPEZIL HYDROCHLORIDE
     Dosage: UNK
     Route: 048
  5. TAKELDA [Concomitant]
     Active Substance: ASPIRIN\LANSOPRAZOLE
     Dosage: UNK
     Route: 048

REACTIONS (2)
  - Bradycardia [Recovered/Resolved with Sequelae]
  - Blood pressure decreased [Recovered/Resolved with Sequelae]

NARRATIVE: CASE EVENT DATE: 20181102
